FAERS Safety Report 26069463 (Version 1)
Quarter: 2025Q4

REPORT INFORMATION
  Report Type: Spontaneous
  Country: US (occurrence: US)
  Receive Date: 20251120
  Receipt Date: 20251120
  Transmission Date: 20260117
  Serious: Yes (Other)
  Sender: SHILPA MEDICARE LIMITED
  Company Number: US-KOANAAP-SML-US-2025-0003

PATIENT

DRUGS (12)
  1. BORTEZOMIB [Suspect]
     Active Substance: BORTEZOMIB
     Indication: Plasma cell myeloma
  2. BORTEZOMIB [Suspect]
     Active Substance: BORTEZOMIB
     Indication: Metastases to spine
  3. BORTEZOMIB [Suspect]
     Active Substance: BORTEZOMIB
     Indication: Spinal cord compression
  4. LENALIDOMIDE [Suspect]
     Active Substance: LENALIDOMIDE
     Indication: Metastases to spine
  5. LENALIDOMIDE [Suspect]
     Active Substance: LENALIDOMIDE
     Indication: Metastases to spine
  6. LENALIDOMIDE [Suspect]
     Active Substance: LENALIDOMIDE
     Indication: Spinal cord compression
  7. DEXAMETHASONE [Suspect]
     Active Substance: DEXAMETHASONE
     Indication: Metastases to spine
  8. DEXAMETHASONE [Suspect]
     Active Substance: DEXAMETHASONE
     Indication: Metastases to spine
  9. DEXAMETHASONE [Suspect]
     Active Substance: DEXAMETHASONE
     Indication: Spinal cord compression
  10. DARATUMUMAB [Suspect]
     Active Substance: DARATUMUMAB
     Indication: Plasma cell myeloma
  11. DARATUMUMAB [Suspect]
     Active Substance: DARATUMUMAB
     Indication: Metastases to spine
  12. DARATUMUMAB [Suspect]
     Active Substance: DARATUMUMAB
     Indication: Spinal cord compression

REACTIONS (3)
  - Drug-induced liver injury [Recovering/Resolving]
  - Vanishing bile duct syndrome [Unknown]
  - Pancytopenia [Unknown]
